FAERS Safety Report 15744511 (Version 2)
Quarter: 2018Q4

REPORT INFORMATION
  Report Type: Report from Study
  Country: AU (occurrence: AU)
  Receive Date: 20181220
  Receipt Date: 20181228
  Transmission Date: 20190205
  Serious: Yes (Other)
  Sender: FDA-Public Use
  Company Number: PHHY2018AU184599

PATIENT
  Age: 8 Year
  Sex: Male

DRUGS (4)
  1. EVEROLIMUS. [Suspect]
     Active Substance: EVEROLIMUS
     Indication: GLIOBLASTOMA
     Dosage: 1.25 MG, QD (1.2MG/M2/DAY)
     Route: 065
  2. EVEROLIMUS. [Suspect]
     Active Substance: EVEROLIMUS
     Indication: ANAPLASTIC ASTROCYTOMA
  3. LEE011 [Suspect]
     Active Substance: RIBOCICLIB
     Indication: ANAPLASTIC ASTROCYTOMA
  4. LEE011 [Suspect]
     Active Substance: RIBOCICLIB
     Indication: GLIOBLASTOMA
     Dosage: 200 MG, (170MG/M2/DAY) QD
     Route: 065

REACTIONS (8)
  - Hemiplegia [Unknown]
  - Vomiting [Recovered/Resolved]
  - Nausea [Unknown]
  - Medication error [Unknown]
  - Product use in unapproved indication [Unknown]
  - Wrong technique in product usage process [Unknown]
  - Dysphagia [Unknown]
  - Phobia [Unknown]

NARRATIVE: CASE EVENT DATE: 2018
